FAERS Safety Report 14387157 (Version 3)
Quarter: 2019Q1

REPORT INFORMATION
  Report Type: Spontaneous
  Country: US (occurrence: US)
  Receive Date: 20180115
  Receipt Date: 20190114
  Transmission Date: 20190417
  Serious: Yes (Other)
  Sender: FDA-Public Use
  Company Number: US-SA-2017SA169574

PATIENT
  Age: 46 Year
  Sex: Female
  Weight: 68.03 kg

DRUGS (13)
  1. DEXAMETHASONE. [Concomitant]
     Active Substance: DEXAMETHASONE
     Dosage: 4 MG,BID
     Route: 048
     Dates: start: 20130909
  2. ONDANSETRON [Concomitant]
     Active Substance: ONDANSETRON
     Dosage: 8 MG,TID
     Route: 048
     Dates: start: 20131209
  3. TAXOTERE [Suspect]
     Active Substance: DOCETAXEL
     Dosage: 20 MG,Q3W
     Route: 042
     Dates: start: 20140217, end: 20140217
  4. PROCHLORPERAZINE. [Concomitant]
     Active Substance: PROCHLORPERAZINE
     Dosage: 10 MG,PRN
     Route: 048
     Dates: start: 20131209
  5. NEOSAR [Concomitant]
     Active Substance: CYCLOPHOSPHAMIDE
  6. TAMOXIFEN [Concomitant]
     Active Substance: TAMOXIFEN
     Dosage: 20 MG,QD
     Route: 048
     Dates: start: 20131229
  7. LEVAQUIN [Concomitant]
     Active Substance: LEVOFLOXACIN
     Dosage: 500 MG,QD
     Route: 048
     Dates: start: 20140113
  8. NYSTATIN. [Concomitant]
     Active Substance: NYSTATIN
     Dosage: UNK UNK,BID
     Route: 061
     Dates: start: 20140109
  9. LIDOCAINE. [Concomitant]
     Active Substance: LIDOCAINE
     Dosage: UNK UNK,PRN
     Route: 061
     Dates: start: 20140520
  10. TAXOTERE [Suspect]
     Active Substance: DOCETAXEL
     Dosage: 80 MG,Q3W
     Route: 042
     Dates: start: 20140127, end: 20140127
  11. DIFLUCAN [Concomitant]
     Active Substance: FLUCONAZOLE
     Dosage: 100 MG,QD
     Route: 048
     Dates: start: 20140109
  12. TAXOTERE [Suspect]
     Active Substance: DOCETAXEL
     Indication: BREAST CANCER FEMALE
     Dosage: 20 MG,Q3W
     Route: 042
     Dates: start: 20140106, end: 20140106
  13. HYDROQUINONE. [Concomitant]
     Active Substance: HYDROQUINONE
     Dosage: UNK UNK,HS
     Route: 061
     Dates: start: 20141001

REACTIONS (2)
  - Alopecia [Not Recovered/Not Resolved]
  - Psychological trauma [Unknown]

NARRATIVE: CASE EVENT DATE: 20150201
